FAERS Safety Report 5139970-5 (Version None)
Quarter: 2006Q4

REPORT INFORMATION
  Report Type: 
  Country: None (occurrence: None)
  Receive Date: 20061031
  Receipt Date: 20051110
  Transmission Date: 20070319
  Serious: Yes (Hospitalization)
  Sender: FDA-Public Use
  Company Number: CA-AMGEN-US154588

PATIENT
  Sex: Male

DRUGS (19)
  1. PALIFERMIN [Suspect]
     Indication: MUCOSAL INFLAMMATION
     Route: 042
     Dates: start: 20050916
  2. CISPLATIN [Suspect]
     Route: 065
  3. MUCOMYST [Concomitant]
     Route: 048
     Dates: start: 20051105
  4. CASPOFUNGIN [Concomitant]
     Route: 042
     Dates: start: 20051105, end: 20051105
  5. CASPOFUNGIN [Concomitant]
     Route: 042
     Dates: start: 20051106, end: 20051110
  6. ATIVAN [Concomitant]
     Dates: start: 20051103, end: 20051112
  7. MAALOX FAST BLOCKER [Concomitant]
     Route: 048
     Dates: start: 20051104, end: 20051118
  8. LIDOCAINE [Concomitant]
     Route: 048
     Dates: start: 20051104, end: 20051118
  9. MAXERAN [Concomitant]
     Dates: start: 20051101, end: 20051103
  10. GRAVOL TAB [Concomitant]
     Route: 042
     Dates: start: 20051103, end: 20051110
  11. GRAVOL TAB [Concomitant]
     Route: 054
     Dates: start: 20051029, end: 20051103
  12. GRAVOL TAB [Concomitant]
     Route: 042
     Dates: start: 20051031, end: 20051103
  13. MOTILIUM [Concomitant]
     Dates: start: 20051103, end: 20051114
  14. HALDOL [Concomitant]
     Route: 058
     Dates: start: 20051103, end: 20051113
  15. SENOKOT [Concomitant]
     Dates: start: 20051104, end: 20051116
  16. LACTULOSE [Concomitant]
     Dates: start: 20051028, end: 20051108
  17. MAXERAN [Concomitant]
     Route: 050
     Dates: start: 20051101, end: 20051103
  18. MAXERAN [Concomitant]
     Route: 050
     Dates: start: 20051026, end: 20051031
  19. TYLENOL [Concomitant]
     Dates: start: 20051028

REACTIONS (11)
  - ASTHENIA [None]
  - CLOSTRIDIUM DIFFICILE COLITIS [None]
  - FATIGUE [None]
  - FEBRILE NEUTROPENIA [None]
  - GENERAL PHYSICAL HEALTH DETERIORATION [None]
  - HAEMOGLOBIN DECREASED [None]
  - HERPES VIRUS INFECTION [None]
  - PLATELET COUNT DECREASED [None]
  - PLATELET COUNT INCREASED [None]
  - THROAT IRRITATION [None]
  - WEIGHT DECREASED [None]
